FAERS Safety Report 4795587-3 (Version None)
Quarter: 2005Q4

REPORT INFORMATION
  Report Type: 
  Country: None (occurrence: None)
  Receive Date: 20051012
  Receipt Date: 20051004
  Transmission Date: 20060501
  Serious: Yes (Other)
  Sender: FDA-Public Use
  Company Number: US-MERCK-0510USA03587

PATIENT
  Age: 49 Year
  Sex: Female

DRUGS (1)
  1. VIOXX [Suspect]
     Route: 048
     Dates: start: 20021112, end: 20031119

REACTIONS (3)
  - CAROTID ARTERY STENOSIS [None]
  - ISCHAEMIC STROKE [None]
  - RENAL ARTERY STENOSIS [None]
